FAERS Safety Report 5413206-X (Version None)
Quarter: 2007Q3

REPORT INFORMATION
  Report Type: 
  Country: None (occurrence: None)
  Receive Date: 20070814
  Receipt Date: 20070810
  Transmission Date: 20080115
  Serious: Yes (Other)
  Sender: FDA-Public Use
  Company Number: PHNR2007AU01367

PATIENT
  Sex: Female

DRUGS (4)
  1. ESTRADIOL [Suspect]
     Indication: HORMONE REPLACEMENT THERAPY
     Dosage: ONE PATCH 75UG TWICE A WEEK
     Route: 062
     Dates: start: 20010426, end: 20070711
  2. IRBESARTAN [Concomitant]
     Dosage: 75 MG, QD
     Route: 048
     Dates: start: 20020605
  3. NORMISON [Concomitant]
     Dosage: 10 MG, PRN (NOCTE)_
     Route: 048
     Dates: start: 20010422
  4. ATORVASTATIN CALCIUM [Concomitant]
     Dosage: 10 MG, QD NOCTE
     Route: 048
     Dates: start: 20030709

REACTIONS (2)
  - APPLICATION SITE IRRITATION [None]
  - APPLICATION SITE VESICLES [None]
